FAERS Safety Report 12963357 (Version 3)
Quarter: 2017Q1

REPORT INFORMATION
  Report Type: Spontaneous
  Country: US (occurrence: US)
  Receive Date: 20161122
  Receipt Date: 20170110
  Transmission Date: 20170428
  Serious: Yes (Other)
  Sender: FDA-Public Use
  Company Number: US-TAKEDA-2016TUS020620

PATIENT
  Sex: Male
  Weight: 78.5 kg

DRUGS (10)
  1. ENTYVIO [Suspect]
     Active Substance: VEDOLIZUMAB
     Indication: COLITIS ULCERATIVE
     Dosage: 300 MG, UNK
     Route: 042
     Dates: start: 20150624
  2. MESALAMINE. [Concomitant]
     Active Substance: MESALAMINE
     Dosage: 4 G, UNK
  3. VIAGRA [Concomitant]
     Active Substance: SILDENAFIL CITRATE
     Dosage: 100 MG, UNK
  4. AMBIEN [Concomitant]
     Active Substance: ZOLPIDEM TARTRATE
     Dosage: 5 MG, UNK
  5. CIALIS [Concomitant]
     Active Substance: TADALAFIL
     Dosage: 20 MG, UNK
  6. LEVITRA [Concomitant]
     Active Substance: VARDENAFIL HYDROCHLORIDE TRIHYDRATE
     Dosage: 20 MG, UNK
  7. PROPECIA [Concomitant]
     Active Substance: FINASTERIDE
     Dosage: 1 MG, UNK
  8. CANASA [Concomitant]
     Active Substance: MESALAMINE
     Dosage: 1000 MG, UNK
     Route: 054
  9. FINASTERIDE. [Concomitant]
     Active Substance: FINASTERIDE
     Dosage: 1 MG, UNK
  10. VITAMIN D [Concomitant]
     Active Substance: CHOLECALCIFEROL
     Dosage: UNK

REACTIONS (3)
  - Chorioretinitis [Not Recovered/Not Resolved]
  - Neovascular age-related macular degeneration [Unknown]
  - Rhinitis [Not Recovered/Not Resolved]
